FAERS Safety Report 5749435-5 (Version None)
Quarter: 2008Q2

REPORT INFORMATION
  Report Type: 
  Country: None (occurrence: None)
  Receive Date: 20080527
  Receipt Date: 20080513
  Transmission Date: 20081010
  Serious: Yes (Hospitalization, Congenital Anomaly)
  Sender: FDA-Public Use
  Company Number: A0650995A

PATIENT
  Sex: Male
  Weight: 2.1 kg

DRUGS (13)
  1. PAXIL [Suspect]
     Indication: DEPRESSION
     Dosage: 50MG PER DAY
     Dates: start: 20031201, end: 20061001
  2. PAXIL CR [Suspect]
     Indication: DEPRESSION
     Route: 048
     Dates: start: 20031201, end: 20061001
  3. VITAMIN TAB [Concomitant]
  4. ZOLOFT [Concomitant]
     Dates: start: 20031001
  5. CYCLOBENZAPRINE HCL [Concomitant]
     Dates: start: 20020501, end: 20031101
  6. ZYPREXA [Concomitant]
     Dates: start: 20040301, end: 20060501
  7. AMBIEN [Concomitant]
     Dates: start: 20040301
  8. ZITHROMAX [Concomitant]
  9. DIFLUCAN [Concomitant]
  10. FERROUS SULFATE TAB [Concomitant]
  11. HYDROCODONE BITARTRATE [Concomitant]
  12. PROCHLORPERAZINE [Concomitant]
  13. PROMETHAZINE [Concomitant]

REACTIONS (27)
  - ATRIAL SEPTAL DEFECT [None]
  - CARDIAC FAILURE CONGESTIVE [None]
  - CARDIAC MURMUR [None]
  - CARDIOMEGALY [None]
  - CONVULSION [None]
  - CYTOGENETIC ABNORMALITY [None]
  - DEVELOPMENTAL DELAY [None]
  - DRUG EXPOSURE DURING PREGNANCY [None]
  - EYELID PTOSIS CONGENITAL [None]
  - FACIAL PALSY [None]
  - FAILURE TO THRIVE [None]
  - INGUINAL HERNIA [None]
  - LEFT VENTRICULAR HYPERTROPHY [None]
  - MACROCEPHALY [None]
  - MOEBIUS II SYNDROME [None]
  - ORAL INTAKE REDUCED [None]
  - PATENT DUCTUS ARTERIOSUS [None]
  - PREMATURE BABY [None]
  - PSYCHOMOTOR SKILLS IMPAIRED [None]
  - PULMONARY HYPERTENSION [None]
  - PULMONARY VALVE INCOMPETENCE [None]
  - RESPIRATORY DISTRESS [None]
  - SINUS TACHYCARDIA [None]
  - SPEECH DISORDER DEVELOPMENTAL [None]
  - TACHYPNOEA [None]
  - TRICUSPID VALVE INCOMPETENCE [None]
  - VENTRICULAR SEPTAL DEFECT [None]
